FAERS Safety Report 4453051-5 (Version None)
Quarter: 2004Q3

REPORT INFORMATION
  Report Type: 
  Country: None (occurrence: None)
  Receive Date: 20040916
  Receipt Date: 20040916
  Transmission Date: 20050211
  Serious: Yes (Hospitalization)
  Sender: FDA-Public Use
  Company Number: None

PATIENT
  Age: 65 Year
  Sex: Male
  Weight: 100.1 kg

DRUGS (9)
  1. XELODA [Suspect]
     Indication: PANCREATIC CARCINOMA
     Dosage: 825 MG/M2 Q12HRS
     Dates: start: 20040812
  2. IRESSA [Suspect]
     Dosage: 250 MG QD
     Dates: start: 20040812
  3. HYDROXIZINE [Concomitant]
  4. XANAX [Concomitant]
  5. CIPRO [Concomitant]
  6. IMODIUM [Concomitant]
  7. COMPAZINE [Concomitant]
  8. TUMS [Concomitant]
  9. GAS-X [Concomitant]

REACTIONS (1)
  - PERIPHERAL OCCLUSIVE DISEASE [None]
